FAERS Safety Report 6322065-2 (Version None)
Quarter: 2009Q3

REPORT INFORMATION
  Report Type: 
  Country: None (occurrence: None)
  Receive Date: 20090821
  Receipt Date: 20090821
  Transmission Date: 20100115
  Serious: No
  Sender: FDA-Public Use
  Company Number: None

PATIENT
  Sex: Male
  Weight: 61.2356 kg

DRUGS (1)
  1. ACCUTANE [Suspect]
     Indication: ACNE
     Dosage: 20 MG PER DAY PO
     Route: 048
     Dates: start: 20031207, end: 20040407

REACTIONS (4)
  - EPIPHYSES PREMATURE FUSION [None]
  - ERECTILE DYSFUNCTION [None]
  - FATIGUE [None]
  - LOSS OF LIBIDO [None]
